FAERS Safety Report 7832421-9 (Version None)
Quarter: 2011Q4

REPORT INFORMATION
  Report Type: 
  Country: None (occurrence: None)
  Receive Date: 20111022
  Receipt Date: 20111014
  Transmission Date: 20120403
  Serious: No
  Sender: FDA-Public Use
  Company Number: US-BAYER-2011-099727

PATIENT
  Age: 48 Year
  Sex: Female

DRUGS (2)
  1. MIRENA [Suspect]
     Dosage: 20 MCG/24HR, CONT
     Dates: start: 20110501
  2. MIRENA [Suspect]
     Dosage: 20 MCG/24HR, CONT

REACTIONS (5)
  - ASTHENIA [None]
  - WEIGHT INCREASED [None]
  - MYALGIA [None]
  - FATIGUE [None]
  - DEPRESSION [None]
